FAERS Safety Report 18176735 (Version 1)
Quarter: 2020Q3

REPORT INFORMATION
  Report Type: Report from Study
  Country: BR (occurrence: BR)
  Receive Date: 20200820
  Receipt Date: 20200820
  Transmission Date: 20201103
  Serious: Yes (Other)
  Sender: FDA-Public Use
  Company Number: BR-JNJFOC-20200818107

PATIENT
  Sex: Male
  Weight: 100 kg

DRUGS (4)
  1. STELARA [Suspect]
     Active Substance: USTEKINUMAB
     Indication: PSORIASIS
     Route: 058
     Dates: start: 20191114
  2. LORAZEPAM. [Concomitant]
     Active Substance: LORAZEPAM
  3. LITHIUM CARBONATE. [Concomitant]
     Active Substance: LITHIUM CARBONATE
  4. QUETIAPINE. [Concomitant]
     Active Substance: QUETIAPINE

REACTIONS (5)
  - Diabetes mellitus [Unknown]
  - Tuberculosis [Unknown]
  - Psoriasis [Unknown]
  - Therapeutic response decreased [Unknown]
  - Hepatic cirrhosis [Unknown]
